FAERS Safety Report 8577956 (Version 3)
Quarter: 2012Q4

REPORT INFORMATION
  Report Type: 
  Country: US (occurrence: US)
  Receive Date: 20120524
  Receipt Date: 20120919
  Transmission Date: 20130627
  Serious: Yes (Hospitalization, Other)
  Sender: FDA-Public Use
  Company Number: US-PFIZER INC-2012052348

PATIENT
  Age: 42 Year
  Sex: Male

DRUGS (9)
  1. CHANTIX [Suspect]
     Indication: SMOKING CESSATION THERAPY
     Dosage: Starter pak
     Dates: start: 200805
  2. CHANTIX [Suspect]
     Dosage: monthly maintenance pack
     Dates: start: 2009
  3. MOTRIN [Concomitant]
     Indication: BACK PAIN
     Dosage: 800 mg, UNK
  4. MOTRIN [Concomitant]
     Indication: ARTHRALGIA
  5. GABAPENTIN [Concomitant]
     Indication: BACK PAIN
     Dosage: UNK
  6. GABAPENTIN [Concomitant]
     Indication: ARTHRALGIA
  7. ETODOLAC [Concomitant]
     Indication: BACK PAIN
     Dosage: UNK
  8. ETODOLAC [Concomitant]
     Indication: ARTHRALGIA
  9. WELLBUTRIN [Concomitant]
     Indication: DEPRESSION
     Dosage: UNK

REACTIONS (3)
  - Intentional overdose [Recovered/Resolved]
  - Suicide attempt [Recovered/Resolved]
  - Depression [Not Recovered/Not Resolved]
